FAERS Safety Report 5990520-0 (Version None)
Quarter: 2008Q4

REPORT INFORMATION
  Report Type: 
  Country: None (occurrence: None)
  Receive Date: 20081211
  Receipt Date: 20081127
  Transmission Date: 20090506
  Serious: Yes (Life-Threatening)
  Sender: FDA-Public Use
  Company Number: JP-PFIZER INC-2008100627

PATIENT

DRUGS (10)
  1. IRINOTECAN HCL [Suspect]
     Indication: GASTRIC CANCER
     Dosage: ONCE WEEKLY FOR THREE WEEKS
     Route: 042
     Dates: start: 20081105, end: 20081111
  2. WARFARIN [Concomitant]
     Dosage: 2DF (2DF, 1 IN 1 D)
     Route: 048
  3. ASPIRIN [Concomitant]
     Dosage: 1 DF (1 DF,1 IN 1 D)
     Route: 048
  4. LANIRAPID [Concomitant]
     Dosage: 1 DF (1 DF, 1 IN 1 D)
     Route: 048
  5. LASIX [Concomitant]
     Dosage: 1 DF (1 DF, 1 IN 1 D)
     Route: 048
  6. ALDACTONE [Concomitant]
     Dosage: 1 DF (1 DF, 1 IN 1 D)
     Route: 048
  7. BLOPRESID [Concomitant]
     Dosage: 1 DF (1 DF, 1 IN 1 D)
  8. ZYLORIC ^FAES^ [Concomitant]
     Dosage: 4 DF (2 DF, 2 IN 1 D)
     Route: 048
  9. RABEPRAZOLE SODIUM [Concomitant]
     Dosage: 1 DF (1 DF, 1 IN 1 D)
     Route: 048
  10. HALCION [Concomitant]
     Dosage: 1 DF (1 DF, 1 IN 1 D)
     Route: 048

REACTIONS (1)
  - PORTAL VENOUS GAS [None]
